FAERS Safety Report 23567046 (Version 1)
Quarter: 2024Q1

REPORT INFORMATION
  Report Type: Spontaneous
  Country: US (occurrence: US)
  Receive Date: 20240226
  Receipt Date: 20240226
  Transmission Date: 20240410
  Serious: No
  Sender: FDA-Public Use
  Company Number: US-AMNEAL PHARMACEUTICALS-2023-AMRX-04122

PATIENT
  Sex: Male

DRUGS (3)
  1. RYTARY [Suspect]
     Active Substance: CARBIDOPA\LEVODOPA
     Indication: Parkinson^s disease
     Dosage: 48.75/195 MILLIGRAM,2 CAPSULES, 5X/DAY
     Route: 048
  2. RYTARY [Suspect]
     Active Substance: CARBIDOPA\LEVODOPA
     Dosage: 48.75/195 MILLIGRAM, 2 CAPSULES AT 6AM, 3 CAPSULES AT 10AM, 2 CAPSULES AT 2PM, 6PM, AND 10 PM
     Route: 048
  3. RYTARY [Suspect]
     Active Substance: CARBIDOPA\LEVODOPA
     Dosage: 61.25/245 MILLIGRAM 2 CAPSULES, 5 /DAY
     Route: 048
     Dates: start: 20221213

REACTIONS (2)
  - Dyspnoea exertional [Unknown]
  - Therapeutic product effect delayed [Unknown]
